FAERS Safety Report 13410702 (Version 2)
Quarter: 2017Q2

REPORT INFORMATION
  Report Type: Spontaneous
  Country: DE (occurrence: DE)
  Receive Date: 20170406
  Receipt Date: 20170417
  Transmission Date: 20170830
  Serious: Yes (Other)
  Sender: FDA-Public Use
  Company Number: DE-PFIZER INC-2017129206

PATIENT
  Age: 47 Year
  Sex: Female
  Weight: 77 kg

DRUGS (1)
  1. RAMIPRIL. [Suspect]
     Active Substance: RAMIPRIL
     Indication: HYPERTENSION
     Dosage: 5 MG, UNK
     Dates: start: 2008

REACTIONS (1)
  - Chorioretinopathy [Recovering/Resolving]

NARRATIVE: CASE EVENT DATE: 20170308
